FAERS Safety Report 10917549 (Version 1)
Quarter: 2015Q1

REPORT INFORMATION
  Report Type: Spontaneous
  Country: GB (occurrence: None)
  Receive Date: 20150311
  Receipt Date: 20150311
  Transmission Date: 20150721
  Serious: Yes (Disabling, Other)
  Sender: FDA-Public Use
  Company Number: FK201501099

PATIENT
  Age: 42 Year
  Sex: Female
  Weight: 63 kg

DRUGS (1)
  1. CARBOPLATIN (MANUFACTURER UNKNOWN) (CARBOPLATIN) (CARBOPLATIN) [Suspect]
     Active Substance: CARBOPLATIN
     Indication: BREAST CANCER
     Route: 051
     Dates: start: 20140829, end: 20141107

REACTIONS (4)
  - Corneal epithelium defect [None]
  - Dry eye [None]
  - Vision blurred [None]
  - Ocular discomfort [None]

NARRATIVE: CASE EVENT DATE: 20150110
